FAERS Safety Report 5892547-6 (Version None)
Quarter: 2008Q3

REPORT INFORMATION
  Report Type: 
  Country: None (occurrence: None)
  Receive Date: 20080923
  Receipt Date: 20080910
  Transmission Date: 20090109
  Serious: Yes (Hospitalization)
  Sender: FDA-Public Use
  Company Number: JP-ELI_LILLY_AND_COMPANY-JP200805006057

PATIENT
  Age: 76 Year
  Sex: Male
  Weight: 56 kg

DRUGS (7)
  1. GEMZAR [Suspect]
     Indication: GALLBLADDER CANCER STAGE IV
     Dosage: 1400 MG, OTHER
     Route: 042
     Dates: start: 20070927, end: 20071011
  2. GEMZAR [Suspect]
     Dosage: 1550 MG, OTHER
     Route: 042
     Dates: start: 20071022, end: 20080327
  3. GEMZAR [Suspect]
     Dosage: 1550 MG, OTHER
     Route: 042
     Dates: start: 20080501, end: 20080515
  4. GEMZAR [Suspect]
     Dosage: 1400 MG, OTHER
     Route: 042
     Dates: start: 20080529, end: 20080716
  5. GEMZAR [Suspect]
     Dosage: 1600 MG, OTHER
     Route: 042
     Dates: start: 20080717
  6. TS 1 [Concomitant]
     Indication: GALLBLADDER CANCER STAGE IV
     Dosage: 120 MG, OTHER
     Route: 048
     Dates: start: 20080410, end: 20080420
  7. TS 1 [Concomitant]
     Dosage: 80 MG, OTHER
     Route: 048
     Dates: start: 20080421, end: 20080423

REACTIONS (2)
  - CAROTID ARTERY STENOSIS [None]
  - RETINAL ARTERY OCCLUSION [None]
